FAERS Safety Report 21824756 (Version 2)
Quarter: 2023Q1

REPORT INFORMATION
  Report Type: Spontaneous
  Country: PT (occurrence: PT)
  Receive Date: 20230105
  Receipt Date: 20230130
  Transmission Date: 20230418
  Serious: Yes (Other)
  Sender: FDA-Public Use
  Company Number: PT-AMGEN-PRTSP2022224686

PATIENT
  Sex: Male
  Weight: 81 kg

DRUGS (10)
  1. UNSPECIFIED INGREDIENT [Suspect]
     Active Substance: UNSPECIFIED INGREDIENT
     Indication: Product used for unknown indication
     Dosage: UNK
  2. DARATUMUMAB [Suspect]
     Active Substance: DARATUMUMAB
     Indication: Product used for unknown indication
     Dosage: UNK
  3. CARFILZOMIB [Suspect]
     Active Substance: CARFILZOMIB
     Indication: Plasma cell myeloma
     Dosage: 45.23 MG/M2
     Dates: start: 20230117
  4. CARFILZOMIB [Suspect]
     Active Substance: CARFILZOMIB
     Dosage: 19.19 MG/M2
     Dates: start: 20221228
  5. CARFILZOMIB [Suspect]
     Active Substance: CARFILZOMIB
     Dosage: 19.19 MG/M2
     Dates: start: 20221214
  6. CARFILZOMIB [Suspect]
     Active Substance: CARFILZOMIB
     Dosage: 19.19 MG/M2
     Dates: start: 20221130
  7. CARFILZOMIB [Suspect]
     Active Substance: CARFILZOMIB
     Dosage: 19.19 MG/M2
     Dates: start: 20221111
  8. CARFILZOMIB [Suspect]
     Active Substance: CARFILZOMIB
     Dosage: 56 MG/M2
     Dates: start: 20221103
  9. CARFILZOMIB [Suspect]
     Active Substance: CARFILZOMIB
     Dosage: 19.19 MG/M2
     Dates: start: 20221028
  10. CARFILZOMIB [Suspect]
     Active Substance: CARFILZOMIB
     Dosage: 19.19 MG/M2
     Dates: start: 20221027

REACTIONS (1)
  - Thrombocytopenia [Unknown]

NARRATIVE: CASE EVENT DATE: 20221101
